FAERS Safety Report 20611359 (Version 1)
Quarter: 2022Q1

REPORT INFORMATION
  Report Type: Spontaneous
  Country: US (occurrence: None)
  Receive Date: 20220317
  Receipt Date: 20220317
  Transmission Date: 20220423
  Serious: Yes (Hospitalization)
  Sender: FDA-Public Use
  Company Number: None

PATIENT
  Age: 52 Year
  Sex: Female
  Weight: 69.75 kg

DRUGS (4)
  1. ASCLERA [Suspect]
     Active Substance: POLIDOCANOL
     Indication: Spider vein
     Dosage: OTHER FREQUENCY : SAME DAY BOTH LEGS;?
     Route: 042
     Dates: start: 20220218, end: 20220218
  2. NP THYROID [Concomitant]
     Active Substance: LEVOTHYROXINE\LIOTHYRONINE
  3. LISINOPRIL [Concomitant]
     Active Substance: LISINOPRIL
  4. BENADRYL [Concomitant]
     Active Substance: DIPHENHYDRAMINE HYDROCHLORIDE

REACTIONS (7)
  - Hypertension [None]
  - Blepharospasm [None]
  - Urticaria [None]
  - Peripheral swelling [None]
  - Peripheral swelling [None]
  - Swelling [None]
  - Asthenia [None]

NARRATIVE: CASE EVENT DATE: 20220218
